FAERS Safety Report 4491494-4 (Version None)
Quarter: 2004Q4

REPORT INFORMATION
  Report Type: 
  Country: None (occurrence: None)
  Receive Date: 20041101
  Receipt Date: 20041020
  Transmission Date: 20050328
  Serious: Yes (Life-Threatening, Hospitalization)
  Sender: FDA-Public Use
  Company Number: 205166

PATIENT
  Age: 61 Year
  Sex: Female
  Weight: 79 kg

DRUGS (11)
  1. HERCEPTIN [Suspect]
     Indication: BREAST CANCER METASTATIC
     Dosage: SEE IMAGE
     Route: 042
     Dates: start: 20031118, end: 20031118
  2. HERCEPTIN [Suspect]
     Indication: BREAST CANCER METASTATIC
     Dosage: SEE IMAGE
     Route: 042
     Dates: start: 20031202
  3. TAXOTERE [Suspect]
     Indication: BREAST CANCER METASTATIC
     Dosage: 140 MG, Q3W, INTRAVENOUS
     Route: 042
     Dates: start: 20031119
  4. CARBOPLATIN [Suspect]
     Indication: BREAST CANCER METASTATIC
     Dosage: 800 MG, Q3W, INTRAVENOUS
     Route: 042
  5. MAXOLON [Concomitant]
  6. DEXAMETHASONE [Concomitant]
  7. FOSAMAX [Concomitant]
  8. PREDNISOLONE [Concomitant]
  9. EFFEXOR [Concomitant]
  10. CELEBREX [Concomitant]
  11. ACIMAX (OMEPRAZOLE MAGNESIUM) [Concomitant]

REACTIONS (16)
  - ABDOMINAL PAIN UPPER [None]
  - DEHYDRATION [None]
  - DYSPNOEA [None]
  - EMOTIONAL DISTRESS [None]
  - HAEMATOCRIT DECREASED [None]
  - HAEMOGLOBIN DECREASED [None]
  - HEADACHE [None]
  - LYMPHOCYTE COUNT DECREASED [None]
  - MIGRAINE [None]
  - NEUTROPENIC INFECTION [None]
  - PALLOR [None]
  - PHOTOPHOBIA [None]
  - RED BLOOD CELL COUNT DECREASED [None]
  - RESPIRATORY RATE INCREASED [None]
  - URINARY TRACT INFECTION [None]
  - WHITE BLOOD CELL COUNT DECREASED [None]
